FAERS Safety Report 6499922-X (Version None)
Quarter: 2009Q4

REPORT INFORMATION
  Report Type: 
  Country: None (occurrence: None)
  Receive Date: 20091214
  Receipt Date: 20091214
  Transmission Date: 20100525
  Serious: Yes (Life-Threatening, Hospitalization)
  Sender: FDA-Public Use
  Company Number: None

PATIENT
  Age: 77 Year
  Sex: Female
  Weight: 77.1115 kg

DRUGS (1)
  1. AMBIEN [Suspect]
     Indication: INSOMNIA
     Dosage: 1 1/2 TABS AT BEDTIME PO (DURATION SEVERAL YEARS)
     Route: 048

REACTIONS (5)
  - ECONOMIC PROBLEM [None]
  - FALL [None]
  - HUNGER [None]
  - MEMORY IMPAIRMENT [None]
  - OVERDOSE [None]
